FAERS Safety Report 8514148-3 (Version None)
Quarter: 2012Q3

REPORT INFORMATION
  Report Type: 
  Country: None (occurrence: None)
  Receive Date: 20120717
  Receipt Date: 20120222
  Transmission Date: 20120928
  Serious: No
  Sender: FDA-Public Use
  Company Number: US-FOUGERA-2012FO001005

PATIENT
  Age: 60 Year
  Sex: Female
  Weight: 86.18 kg

DRUGS (12)
  1. CLINDAMYCIN [Suspect]
     Route: 061
     Dates: start: 20111001, end: 20120123
  2. VITAMIN B COMPLEX /00056201/ [Concomitant]
     Indication: VITAMIN SUPPLEMENTATION
     Route: 048
  3. VITAMIN E /00110502/ [Concomitant]
     Indication: VITAMIN SUPPLEMENTATION
     Route: 048
  4. VITAMIN C /00968001/ [Concomitant]
     Indication: VITAMIN SUPPLEMENTATION
     Route: 048
  5. CALCIUM WITH VITAMIN D /00944201/ [Concomitant]
     Indication: VITAMIN SUPPLEMENTATION
     Route: 048
  6. CLINDAMYCIN [Suspect]
     Indication: ACNE
     Route: 061
     Dates: start: 20110801, end: 20111001
  7. FISH OIL [Concomitant]
     Indication: VITAMIN SUPPLEMENTATION
     Route: 048
  8. CLINDAMYCIN [Suspect]
     Route: 061
     Dates: start: 20111001, end: 20120123
  9. MULTI-VITAMINS [Concomitant]
     Indication: VITAMIN SUPPLEMENTATION
     Route: 048
  10. CLINDAMYCIN [Suspect]
     Indication: INFECTION
     Route: 061
     Dates: start: 20110801, end: 20111001
  11. GARLIC /01570501/ [Concomitant]
     Indication: VITAMIN SUPPLEMENTATION
     Route: 048
  12. AVENA SATIVA [Concomitant]
     Indication: VITAMIN SUPPLEMENTATION
     Route: 048

REACTIONS (1)
  - TREMOR [None]
